FAERS Safety Report 6109224-9 (Version None)
Quarter: 2009Q1

REPORT INFORMATION
  Report Type: 
  Country: None (occurrence: None)
  Receive Date: 20090310
  Receipt Date: 20090304
  Transmission Date: 20090719
  Serious: Yes (Hospitalization)
  Sender: FDA-Public Use
  Company Number: US-BRISTOL-MYERS SQUIBB COMPANY-14464440

PATIENT
  Age: 72 Year
  Sex: Female
  Weight: 67 kg

DRUGS (2)
  1. SPRYCEL [Suspect]
     Indication: OVARIAN EPITHELIAL CANCER
     Dosage: TOTAL DOSE: 2200MG, LAST ADMINISTERED DATE:07JAN09
     Route: 048
     Dates: start: 20081215, end: 20090107
  2. LISINOPRIL [Suspect]

REACTIONS (5)
  - ABDOMINAL PAIN [None]
  - ASCITES [None]
  - BLOOD POTASSIUM DECREASED [None]
  - DEHYDRATION [None]
  - DYSPNOEA [None]
